FAERS Safety Report 4726026-6 (Version None)
Quarter: 2005Q3

REPORT INFORMATION
  Report Type: 
  Country: None (occurrence: None)
  Receive Date: 20050727
  Receipt Date: 20040909
  Transmission Date: 20060218
  Serious: Yes (Hospitalization)
  Sender: FDA-Public Use
  Company Number: 200412062DE

PATIENT
  Sex: Female

DRUGS (3)
  1. LANTUS [Suspect]
     Indication: GESTATIONAL DIABETES
     Route: 058
     Dates: start: 20040728, end: 20040812
  2. ACTRAPID [Concomitant]
     Indication: GESTATIONAL DIABETES
     Dates: start: 20040801
  3. ZANTAC [Concomitant]
     Dates: start: 20040801

REACTIONS (7)
  - ARRESTED LABOUR [None]
  - CERVICAL INCOMPETENCE [None]
  - DRUG EXPOSURE DURING PREGNANCY [None]
  - GASTRITIS [None]
  - LEUKOCYTOSIS [None]
  - PREMATURE LABOUR [None]
  - PYREXIA [None]
